FAERS Safety Report 7953045-9 (Version None)
Quarter: 2011Q4

REPORT INFORMATION
  Report Type: 
  Country: None (occurrence: None)
  Receive Date: 20111201
  Receipt Date: 20111103
  Transmission Date: 20120403
  Serious: Yes (Other)
  Sender: FDA-Public Use
  Company Number: US-ELI_LILLY_AND_COMPANY-US201111002801

PATIENT
  Sex: Male

DRUGS (2)
  1. TARCEVA [Concomitant]
  2. GEMZAR [Suspect]
     Indication: PANCREATIC CARCINOMA
     Dosage: 600 MG/M2, USUALLY EVERY 2WEEKS
     Dates: start: 20110801

REACTIONS (9)
  - DYSGEUSIA [None]
  - DIARRHOEA [None]
  - HAEMOGLOBIN DECREASED [None]
  - CONSTIPATION [None]
  - RASH [None]
  - WHITE BLOOD CELL COUNT DECREASED [None]
  - WEIGHT DECREASED [None]
  - ALOPECIA [None]
  - EATING DISORDER [None]
